FAERS Safety Report 24975982 (Version 1)
Quarter: 2025Q1

REPORT INFORMATION
  Report Type: Spontaneous
  Country: US (occurrence: US)
  Receive Date: 20250217
  Receipt Date: 20250217
  Transmission Date: 20250408
  Serious: No
  Sender: GLENMARK
  Company Number: US-GLENMARK PHARMACEUTICALS-2024GMK090090

PATIENT

DRUGS (1)
  1. TOPIRAMATE [Suspect]
     Active Substance: TOPIRAMATE
     Indication: Obesity
     Route: 048
     Dates: start: 20240321

REACTIONS (3)
  - Wrong technique in product usage process [Unknown]
  - Product physical issue [Unknown]
  - Drug ineffective for unapproved indication [Unknown]
